FAERS Safety Report 10881975 (Version 1)
Quarter: 2015Q1

REPORT INFORMATION
  Report Type: Spontaneous
  Country: None (occurrence: None)
  Receive Date: 20150226
  Receipt Date: 20150226
  Transmission Date: 20150721
  Serious: Yes (Life-Threatening)
  Sender: FDA-Public Use
  Company Number: None

PATIENT
  Age: 61 Year
  Sex: Female
  Weight: 107.05 kg

DRUGS (1)
  1. OXALIPLATIN. [Suspect]
     Active Substance: OXALIPLATIN
     Indication: CHEMOTHERAPY
     Dates: start: 20150223

REACTIONS (6)
  - Oropharyngeal pain [None]
  - Back pain [None]
  - Flushing [None]
  - Nausea [None]
  - Paraesthesia [None]
  - Throat tightness [None]

NARRATIVE: CASE EVENT DATE: 20150213
